FAERS Safety Report 19455908 (Version 2)
Quarter: 2021Q2

REPORT INFORMATION
  Report Type: Report from Study
  Country: US (occurrence: US)
  Receive Date: 20210624
  Receipt Date: 20210630
  Transmission Date: 20210717
  Serious: Yes (Hospitalization)
  Sender: FDA-Public Use
  Company Number: US-GILEAD-2021-0536735

PATIENT
  Age: 82 Year
  Sex: Female
  Weight: 56.24 kg

DRUGS (9)
  1. CARDIZEM [Concomitant]
     Active Substance: DILTIAZEM HYDROCHLORIDE
  2. ALBUTEROL [SALBUTAMOL] [Concomitant]
     Active Substance: ALBUTEROL
  3. DEMADEX [Concomitant]
     Active Substance: TORSEMIDE
  4. AMBRISENTAN [Suspect]
     Active Substance: AMBRISENTAN
     Indication: PULMONARY HYPERTENSION
     Dosage: 10 MG, QD
     Route: 048
     Dates: start: 20200302
  5. ZYLOPRIM [Concomitant]
     Active Substance: ALLOPURINOL
  6. ASPIRIN [ACETYLSALICYLIC ACID] [Concomitant]
     Active Substance: ASPIRIN
  7. TADALAFIL. [Concomitant]
     Active Substance: TADALAFIL
  8. ADCIRCA [Concomitant]
     Active Substance: TADALAFIL
  9. ZAROXOLYN [Concomitant]
     Active Substance: METOLAZONE

REACTIONS (1)
  - Dyspnoea [Recovered/Resolved]

NARRATIVE: CASE EVENT DATE: 20210605
